FAERS Safety Report 6637839-8 (Version None)
Quarter: 2010Q1

REPORT INFORMATION
  Report Type: 
  Country: None (occurrence: None)
  Receive Date: 20100312
  Receipt Date: 20100226
  Transmission Date: 20100710
  Serious: Yes (Other)
  Sender: FDA-Public Use
  Company Number: TRP_06829_2010

PATIENT
  Sex: Female

DRUGS (8)
  1. RIBASPHERE [Suspect]
     Indication: HEPATITIS C
     Dosage: 1400 MG (600 MG AM 800 PM)
     Dates: start: 20091020
  2. RIBAVIRIN [Suspect]
     Indication: HEPATITIS C
     Dosage: DF
     Dates: start: 20090601
  3. INTERFERON [Suspect]
     Indication: HEPATITIS C
     Dosage: DF
     Dates: start: 20090601
  4. PEG-INTERFERON [Suspect]
     Indication: HEPATITIS C
     Dosage: DF
     Dates: start: 20091020
  5. DIURETICS [Suspect]
     Indication: HYPERTENSION
     Dosage: DF
     Dates: end: 20090101
  6. PREMARIN [Concomitant]
  7. CHANTIX /05703001/ [Concomitant]
  8. VOLTAREN [Concomitant]

REACTIONS (6)
  - DRUG INEFFECTIVE [None]
  - HYPOTENSION [None]
  - LOSS OF CONSCIOUSNESS [None]
  - MOUTH ULCERATION [None]
  - ODYNOPHAGIA [None]
  - ORAL PAIN [None]
